FAERS Safety Report 9541439 (Version 1)
Quarter: 2013Q2

REPORT INFORMATION
  Report Type: Spontaneous
  Country: US (occurrence: None)
  Receive Date: 20130524
  Receipt Date: 20130524
  Transmission Date: 20140414
  Serious: No
  Sender: FDA-Public Use
  Company Number: PHEH2012US024839

PATIENT
  Age: 56 Year
  Sex: Female
  Weight: 69.8 kg

DRUGS (11)
  1. GILENYA (FINGOLIMOD) CAPSULE, 0.5MG [Suspect]
     Indication: MULTIPLE SCLEROSIS
     Route: 048
     Dates: start: 20121127
  2. NEURONTIN [Concomitant]
  3. CITALOPRAM [Concomitant]
  4. BACLOFEN [Concomitant]
  5. OXBUTYNIN [Concomitant]
  6. HYDROCHLOROTH [Concomitant]
  7. METANX [Concomitant]
  8. CLONAZEPAM [Concomitant]
  9. MAGNESIUM [Concomitant]
  10. NUCYNTA [Concomitant]
  11. TYLENOL [Concomitant]

REACTIONS (9)
  - Nasal discomfort [None]
  - Acne [None]
  - Sinus disorder [None]
  - Cough [None]
  - Fungal infection [None]
  - Conjunctivitis [None]
  - Eye discharge [None]
  - Ocular hyperaemia [None]
  - Infection [None]
